FAERS Safety Report 21980414 (Version 8)
Quarter: 2023Q2

REPORT INFORMATION
  Report Type: Report from Study
  Country: US (occurrence: US)
  Receive Date: 20230211
  Receipt Date: 20230626
  Transmission Date: 20230721
  Serious: No
  Sender: FDA-Public Use
  Company Number: US-002147023-NVSC2023US027116

PATIENT
  Sex: Male

DRUGS (3)
  1. GLEEVEC [Suspect]
     Active Substance: IMATINIB MESYLATE
     Indication: Philadelphia positive chronic myeloid leukaemia
     Dosage: UNK
     Route: 048
  2. SCEMBLIX [Suspect]
     Active Substance: ASCIMINIB HYDROCHLORIDE
     Indication: Product used for unknown indication
     Dosage: 200 MG, BID
     Route: 048
     Dates: start: 202301
  3. SCEMBLIX [Suspect]
     Active Substance: ASCIMINIB HYDROCHLORIDE
     Dosage: 160 MG, BID (4 TABLETS DAILY)
     Route: 048

REACTIONS (11)
  - Muscle spasms [Recovered/Resolved]
  - Nasal congestion [Unknown]
  - Gait disturbance [Unknown]
  - Axillary pain [Recovering/Resolving]
  - Electrocardiogram abnormal [Unknown]
  - Pain in extremity [Unknown]
  - Heart rate irregular [Unknown]
  - Arthralgia [Unknown]
  - Labelled drug-food interaction medication error [Unknown]
  - Product tampering [Unknown]
  - Product packaging quantity issue [Unknown]
